FAERS Safety Report 19225704 (Version 1)
Quarter: 2021Q2

REPORT INFORMATION
  Report Type: Spontaneous
  Country: FR (occurrence: FR)
  Receive Date: 20210506
  Receipt Date: 20210506
  Transmission Date: 20210717
  Serious: Yes (Hospitalization)
  Sender: FDA-Public Use
  Company Number: FR-ROCHE-2824445

PATIENT
  Age: 27 Year
  Sex: Female
  Weight: 62.5 kg

DRUGS (5)
  1. NEXPLANON [Suspect]
     Active Substance: ETONOGESTREL
     Indication: CONTRACEPTION
     Route: 023
  2. METHYLPREDNISOLONE. [Suspect]
     Active Substance: METHYLPREDNISOLONE
     Indication: IMMUNE THROMBOCYTOPENIA
     Dosage: MOST RECENT DOSE OF METHYLPREDNISOLONE WAS RECEIVED IN /FEB/2021.
     Route: 041
     Dates: start: 20210212
  3. RITUXIMAB. [Suspect]
     Active Substance: RITUXIMAB
     Indication: IMMUNE THROMBOCYTOPENIA
     Dosage: 12/02, 16/02, 19/02 ET 03/03?MOST RECENT DOSE OF RITUXIMAB WAS RECEIVED ON 03/MAR/2021.
     Route: 041
     Dates: start: 20210212
  4. CORTANCYL [Suspect]
     Active Substance: PREDNISONE
     Indication: IMMUNE THROMBOCYTOPENIA
     Route: 048
     Dates: start: 202102
  5. CABLIVI [Suspect]
     Active Substance: CAPLACIZUMAB-YHDP
     Indication: IMMUNE THROMBOCYTOPENIA
     Dosage: MOST RECENT DOSE OF CAPLACIZUMAB YHDP WAS RECEIVED ON 16/MAR/2021.
     Route: 041
     Dates: start: 20210211

REACTIONS (1)
  - Depression [Not Recovered/Not Resolved]

NARRATIVE: CASE EVENT DATE: 202103
